FAERS Safety Report 7248008-5 (Version None)
Quarter: 2011Q1

REPORT INFORMATION
  Report Type: 
  Country: None (occurrence: None)
  Receive Date: 20110127
  Receipt Date: 20110112
  Transmission Date: 20110831
  Serious: Yes (Hospitalization)
  Sender: FDA-Public Use
  Company Number: IT-BAYER-2011-003874

PATIENT
  Sex: Female

DRUGS (2)
  1. ATENOLOL [Concomitant]
     Dosage: 25 MG, QD
  2. ASPIRIN [Suspect]
     Indication: INFLUENZA
     Dosage: 500 MG, ONCE
     Route: 048
     Dates: start: 20110106, end: 20110106

REACTIONS (4)
  - OEDEMA PERIPHERAL [None]
  - PRURITUS [None]
  - FACE OEDEMA [None]
  - ERYTHEMA [None]
